FAERS Safety Report 7035815-7 (Version None)
Quarter: 2010Q4

REPORT INFORMATION
  Report Type: 
  Country: None (occurrence: None)
  Receive Date: 20101007
  Receipt Date: 20101007
  Transmission Date: 20110411
  Serious: No
  Sender: FDA-Public Use
  Company Number: None

PATIENT
  Sex: Female
  Weight: 72.7 kg

DRUGS (1)
  1. AFINITOR [Suspect]
     Indication: CARCINOID TUMOUR
     Dosage: 1 TAB DAILY BY MOUTH
     Route: 048
     Dates: start: 20080101, end: 20100902

REACTIONS (4)
  - BLOOD GLUCOSE DECREASED [None]
  - HYPOPHAGIA [None]
  - STOMATITIS [None]
  - WEIGHT DECREASED [None]
